FAERS Safety Report 6611216-8 (Version None)
Quarter: 2010Q1

REPORT INFORMATION
  Report Type: 
  Country: None (occurrence: None)
  Receive Date: 20100303
  Receipt Date: 20100223
  Transmission Date: 20100710
  Serious: Yes (Other)
  Sender: FDA-Public Use
  Company Number: US-BAYER-201014968NA

PATIENT
  Age: 57 Year
  Sex: Female

DRUGS (8)
  1. BETASERON [Suspect]
     Indication: RELAPSING-REMITTING MULTIPLE SCLEROSIS
     Dosage: TOTAL DAILY DOSE: 2 MIU
     Route: 058
     Dates: start: 20100112
  2. BETASERON [Suspect]
     Dosage: TOTAL DAILY DOSE: 4 MIU
     Route: 058
     Dates: start: 20100202
  3. BETASERON [Suspect]
     Dosage: TOTAL DAILY DOSE: 6 MIU
     Route: 058
     Dates: start: 20100211
  4. PROVIGIL [Concomitant]
     Dates: start: 20100115
  5. RITALIN [Concomitant]
     Dates: end: 20100115
  6. IBUPROFEN [Concomitant]
  7. PREDINISONE [Concomitant]
     Indication: ANGIOEDEMA
  8. ANTIHISTAMINES [Concomitant]
     Indication: ANGIOEDEMA

REACTIONS (1)
  - ANGIOEDEMA [None]
